FAERS Safety Report 18327958 (Version 1)
Quarter: 2020Q3

REPORT INFORMATION
  Report Type: Spontaneous
  Country: FR (occurrence: FR)
  Receive Date: 20200930
  Receipt Date: 20200930
  Transmission Date: 20201103
  Serious: Yes (Hospitalization)
  Sender: FDA-Public Use
  Company Number: FR-SUN PHARMACEUTICAL INDUSTRIES LTD-2020RR-262204

PATIENT
  Age: 84 Year
  Sex: Female

DRUGS (1)
  1. ESOMEPRAZOLE SUN [Suspect]
     Active Substance: ESOMEPRAZOLE SODIUM
     Indication: ULCER HAEMORRHAGE
     Dosage: 8 MILLIGRAM, UNK
     Route: 042
     Dates: start: 20200828, end: 20200830

REACTIONS (2)
  - Infusion site inflammation [Not Recovered/Not Resolved]
  - Deep vein thrombosis [Not Recovered/Not Resolved]

NARRATIVE: CASE EVENT DATE: 20200831
